FAERS Safety Report 23703391 (Version 1)
Quarter: 2024Q2

REPORT INFORMATION
  Report Type: Spontaneous
  Country: US (occurrence: None)
  Receive Date: 20240403
  Receipt Date: 20240403
  Transmission Date: 20240716
  Serious: No
  Sender: FDA-Public Use
  Company Number: None

PATIENT
  Age: 70 Year
  Sex: Female
  Weight: 71.21 kg

DRUGS (26)
  1. THERATEARS [Suspect]
     Active Substance: CARBOXYMETHYLCELLULOSE SODIUM
     Indication: Dry eye
     Dates: start: 20240229, end: 20240307
  2. AMLODIPINE [Concomitant]
     Active Substance: AMLODIPINE BESYLATE
  3. OMEPRAZOLE [Concomitant]
  4. ROPINIROLE [Concomitant]
  5. ATORVASTATIN [Concomitant]
  6. Bensonatate [Concomitant]
  7. VENLAFAXINE [Concomitant]
  8. ROPINIROLE [Concomitant]
     Active Substance: ROPINIROLE
  9. TROSPIUM [Concomitant]
     Active Substance: TROSPIUM
  10. Trimethoprin [Concomitant]
  11. ALPRAZOLAM [Concomitant]
  12. GABAPENTIN [Concomitant]
  13. VITAMIN B COMPLEX [Concomitant]
     Active Substance: CYANOCOBALAMIN\DEXPANTHENOL\NIACINAMIDE\PYRIDOXINE HYDROCHLORIDE\RIBOFLAVIN 5^-PHOSPHATE SODIUM\THIA
  14. FISH OIL [Concomitant]
     Active Substance: FISH OIL
  15. VITAMIN D3 [Concomitant]
     Active Substance: CHOLECALCIFEROL
  16. MINERALS\VITAMINS [Concomitant]
     Active Substance: MINERALS\VITAMINS
  17. COENZYME [Concomitant]
  18. K-2 [Concomitant]
  19. K-3 [Concomitant]
  20. Magnesium  Lysina Glycinate [Concomitant]
  21. HERBALS\TURMERIC [Concomitant]
     Active Substance: HERBALS\TURMERIC
  22. Stool softerner [Concomitant]
  23. VEGETABLE LAXATIVE [Concomitant]
     Active Substance: SENNOSIDES A AND B
  24. Sleep 5 [Concomitant]
  25. Dulcolax [Concomitant]
  26. Trimethoprin [Concomitant]

REACTIONS (1)
  - Eye pain [None]
